FAERS Safety Report 7980955-9 (Version None)
Quarter: 2011Q4

REPORT INFORMATION
  Report Type: 
  Country: None (occurrence: None)
  Receive Date: 20111215
  Receipt Date: 20111209
  Transmission Date: 20120403
  Serious: Yes (Hospitalization, Other)
  Sender: FDA-Public Use
  Company Number: DE-BIOGENIDEC-2011BI046888

PATIENT
  Age: 42 Year
  Sex: Female
  Weight: 66 kg

DRUGS (2)
  1. AVONEX [Suspect]
     Indication: MULTIPLE SCLEROSIS
     Route: 030
     Dates: start: 20050115
  2. METOPROLOLSUCCINAT [Concomitant]
     Indication: HYPERTENSION
     Dates: start: 20101001

REACTIONS (3)
  - UTERINE PAIN [None]
  - CERVIX CARCINOMA [None]
  - IRRITABLE BOWEL SYNDROME [None]
